FAERS Safety Report 16924156 (Version 1)
Quarter: 2019Q4

REPORT INFORMATION
  Report Type: Spontaneous
  Country: IT (occurrence: IT)
  Receive Date: 20191016
  Receipt Date: 20191016
  Transmission Date: 20200122
  Serious: Yes (Other)
  Sender: FDA-Public Use
  Company Number: IT-ALLERGAN-1941451US

PATIENT
  Sex: Female

DRUGS (1)
  1. FOSFOMYCIN TROMETHAMINE - BP [Suspect]
     Active Substance: FOSFOMYCIN TROMETHAMINE
     Indication: CYSTITIS
     Dosage: 3 G, SINGLE
     Route: 048
     Dates: start: 20190702, end: 20190702

REACTIONS (2)
  - Hypersensitivity [Recovering/Resolving]
  - Eyelid oedema [Recovering/Resolving]

NARRATIVE: CASE EVENT DATE: 20190702
